FAERS Safety Report 8314929-5 (Version None)
Quarter: 2012Q2

REPORT INFORMATION
  Report Type: 
  Country: None (occurrence: None)
  Receive Date: 20120426
  Receipt Date: 20120416
  Transmission Date: 20120825
  Serious: Yes (Hospitalization)
  Sender: FDA-Public Use
  Company Number: US-JNJFOC-20120408378

PATIENT
  Sex: Female
  Weight: 33.1 kg

DRUGS (5)
  1. REMICADE [Suspect]
     Indication: INFLAMMATORY BOWEL DISEASE
     Route: 042
     Dates: start: 20110714
  2. CALMOSEPTINE [Concomitant]
  3. MESALAMINE [Concomitant]
     Route: 048
  4. FOLVITE [Concomitant]
  5. ANTIBIOTICS [Concomitant]

REACTIONS (1)
  - WEIGHT DECREASED [None]
